FAERS Safety Report 10039137 (Version 3)
Quarter: 2014Q2

REPORT INFORMATION
  Report Type: Spontaneous
  Country: GB (occurrence: GB)
  Receive Date: 20140326
  Receipt Date: 20140507
  Transmission Date: 20141212
  Serious: Yes (Other)
  Sender: FDA-Public Use
  Company Number: PHFR2014GB001750

PATIENT
  Age: 51 Year
  Sex: Female

DRUGS (5)
  1. CLOZARIL [Suspect]
     Indication: SCHIZOPHRENIA
     Dosage: 500 MG, DAILY
     Route: 048
     Dates: start: 20010701
  2. CLONAZEPAM [Concomitant]
     Indication: ANXIETY
     Dosage: 0.5 MG, DAILY
     Route: 048
  3. ARIPIPRAZOLE [Concomitant]
     Indication: SCHIZOPHRENIA
     Dosage: 10 MG, DAILY
     Route: 048
  4. BUSPIRONE [Concomitant]
     Indication: ANXIETY
     Dosage: 15 MG, DAILY
     Route: 048
  5. OXYBUTYNIN [Concomitant]
     Indication: SALIVARY HYPERSECRETION
     Dosage: 2.5 MG, DAILY
     Route: 048

REACTIONS (2)
  - Renal cancer [Not Recovered/Not Resolved]
  - Anaemia [Unknown]
